FAERS Safety Report 7201899-6 (Version None)
Quarter: 2010Q4

REPORT INFORMATION
  Report Type: 
  Country: None (occurrence: None)
  Receive Date: 20101229
  Receipt Date: 20101222
  Transmission Date: 20110411
  Serious: Yes (Hospitalization)
  Sender: FDA-Public Use
  Company Number: FR-SOLVAY-00210007653

PATIENT
  Age: 1005 Month
  Sex: Male

DRUGS (11)
  1. AMLOR [Concomitant]
     Indication: PRODUCT USED FOR UNKNOWN INDICATION
     Dosage: DAILY DOSE:  UNKNOWN
     Route: 065
  2. LANSOPRAZOLE [Concomitant]
     Indication: PRODUCT USED FOR UNKNOWN INDICATION
     Dosage: DAILY DOSE:  UNKNOWN
     Route: 065
     Dates: end: 20100918
  3. SOLU-MEDROL [Suspect]
     Indication: PRODUCT USED FOR UNKNOWN INDICATION
     Dosage: DAILY DOSE: 16 MILLIGRAM(S)
     Route: 065
  4. SOLU-MEDROL [Suspect]
     Dosage: DAILY DOSE: 80 MILLIGRAM(S)
     Route: 048
     Dates: start: 20101001, end: 20101011
  5. EUPANTOL [Suspect]
     Indication: ABDOMINAL PAIN UPPER
     Dosage: DAILY DOSE: 40 MILLIGRAM(S)
     Route: 048
     Dates: start: 20101001, end: 20101007
  6. NEXIUM [Suspect]
     Indication: ABDOMINAL PAIN UPPER
     Dosage: DAILY DOSE: 40 MILLIGRAM(S)
     Route: 048
     Dates: start: 20101007, end: 20101011
  7. TAHOR [Suspect]
     Indication: HYPERCHOLESTEROLAEMIA
     Dosage: DAILY DOSE: 20 MILLIGRAM(S)
     Route: 048
     Dates: end: 20101011
  8. TAHOR [Suspect]
     Dosage: DAILY DOSE: 20 MILLIGRAM(S)
     Route: 048
     Dates: start: 20101001
  9. DAFALGAN [Suspect]
     Indication: PRODUCT USED FOR UNKNOWN INDICATION
     Dosage: DAILY DOSE:  UNKNOWN
     Route: 048
     Dates: start: 20100918, end: 20101012
  10. PERINDOPRIL ERBUMINE [Suspect]
     Indication: HYPERTENSION
     Dosage: DAILY DOSE: 2 MILLIGRAM(S)
     Route: 048
     Dates: end: 20101011
  11. PERINDOPRIL ERBUMINE [Suspect]
     Dosage: DAILY DOSE: 2.5 MILLIGRAM(S)
     Route: 065
     Dates: start: 20100101

REACTIONS (3)
  - FALL [None]
  - SUBDURAL HAEMATOMA [None]
  - THROMBOCYTOPENIA [None]
